FAERS Safety Report 8348585-7 (Version None)
Quarter: 2012Q2

REPORT INFORMATION
  Report Type: 
  Country: None (occurrence: None)
  Receive Date: 20120510
  Receipt Date: 20120426
  Transmission Date: 20120825
  Serious: Yes (Other)
  Sender: FDA-Public Use
  Company Number: US-BIOGENIDEC-2011BI005383

PATIENT
  Age: 33 Year
  Sex: Female

DRUGS (4)
  1. LABETALOL HCL [Concomitant]
  2. MULTI-VITAMINS [Concomitant]
  3. TYSABRI [Suspect]
     Indication: MULTIPLE SCLEROSIS
     Route: 042
     Dates: start: 20090820, end: 20101209
  4. MACROBID ANTIBIOTIC [Concomitant]
     Indication: CYSTITIS

REACTIONS (5)
  - ABORTION SPONTANEOUS [None]
  - CYSTITIS [None]
  - MATERNAL EXPOSURE DURING PREGNANCY [None]
  - PREGNANCY [None]
  - UNINTENDED PREGNANCY [None]
